FAERS Safety Report 8611907-3 (Version None)
Quarter: 2012Q3

REPORT INFORMATION
  Report Type: 
  Country: None (occurrence: None)
  Receive Date: 20120822
  Receipt Date: 20120810
  Transmission Date: 20120928
  Serious: Yes (Hospitalization)
  Sender: FDA-Public Use
  Company Number: US-CELGENEUS-163-50794-12081347

PATIENT
  Sex: Male
  Weight: 99.79 kg

DRUGS (3)
  1. VIDAZA [Suspect]
     Indication: LEIOMYOSARCOMA METASTATIC
     Dosage: 2.6786 MILLIGRAM/SQ. METER
     Route: 058
     Dates: start: 20120709, end: 20120713
  2. TEMOZOLOMIDE [Suspect]
     Indication: SARCOMA
     Dosage: 7.1429 MILLIGRAM/SQ. METER
     Route: 048
     Dates: start: 20120716, end: 20120720
  3. MILK OF MAGNESIA TAB [Concomitant]
     Route: 065
     Dates: start: 20120805

REACTIONS (2)
  - ABDOMINAL PAIN [None]
  - ANAL FISTULA [None]
